FAERS Safety Report 13655324 (Version 3)
Quarter: 2018Q3

REPORT INFORMATION
  Report Type: Report from Study
  Country: JP (occurrence: JP)
  Receive Date: 20170615
  Receipt Date: 20180718
  Transmission Date: 20181010
  Serious: Yes (Hospitalization, Other)
  Sender: FDA-Public Use
  Company Number: JP-AMGEN-JPNNI2016079387

PATIENT
  Age: 68 Year
  Sex: Male

DRUGS (22)
  1. DARBEPOETIN ALFA [Suspect]
     Active Substance: DARBEPOETIN ALFA
     Dosage: UNK
     Route: 042
     Dates: start: 20170815, end: 20171125
  2. ROCALTROL [Suspect]
     Active Substance: CALCITRIOL
     Dosage: UNK
     Route: 042
     Dates: start: 20171207, end: 20180125
  3. DARBEPOETIN ALFA [Suspect]
     Active Substance: DARBEPOETIN ALFA
     Dosage: UNK
     Route: 042
     Dates: start: 20151013, end: 20151019
  4. DARBEPOETIN ALFA [Suspect]
     Active Substance: DARBEPOETIN ALFA
     Dosage: UNK
     Route: 042
     Dates: start: 20170404, end: 20170422
  5. DARBEPOETIN ALFA [Suspect]
     Active Substance: DARBEPOETIN ALFA
     Dosage: UNK
     Route: 042
     Dates: start: 20171128, end: 20171230
  6. DARBEPOETIN ALFA [Suspect]
     Active Substance: DARBEPOETIN ALFA
     Dosage: UNK
     Route: 042
     Dates: start: 20151124, end: 20160305
  7. DARBEPOETIN ALFA [Suspect]
     Active Substance: DARBEPOETIN ALFA
     Dosage: UNK
     Route: 042
     Dates: start: 20160712, end: 20161015
  8. DARBEPOETIN ALFA [Suspect]
     Active Substance: DARBEPOETIN ALFA
     Dosage: UNK
     Route: 042
     Dates: start: 20161018, end: 20161112
  9. DARBEPOETIN ALFA [Suspect]
     Active Substance: DARBEPOETIN ALFA
     Dosage: UNK
     Route: 042
     Dates: start: 20170613, end: 20170812
  10. ROCALTROL [Suspect]
     Active Substance: CALCITRIOL
     Indication: PRODUCT USED FOR UNKNOWN INDICATION
     Dosage: UNK
     Route: 042
     Dates: start: 20170606, end: 20170624
  11. ROCALTROL [Suspect]
     Active Substance: CALCITRIOL
     Dosage: UNK
     Route: 042
     Dates: start: 20170627, end: 20171205
  12. DARBEPOETIN ALFA [Suspect]
     Active Substance: DARBEPOETIN ALFA
     Dosage: UNK
     Route: 042
     Dates: start: 20150623, end: 20150829
  13. DARBEPOETIN ALFA [Suspect]
     Active Substance: DARBEPOETIN ALFA
     Dosage: UNK
     Route: 042
     Dates: start: 20170307, end: 20170401
  14. DARBEPOETIN ALFA [Suspect]
     Active Substance: DARBEPOETIN ALFA
     Dosage: UNK
     Route: 042
     Dates: start: 20150901, end: 20151012
  15. DARBEPOETIN ALFA [Suspect]
     Active Substance: DARBEPOETIN ALFA
     Dosage: UNK
     Route: 042
     Dates: start: 20160308, end: 20160709
  16. DARBEPOETIN ALFA [Suspect]
     Active Substance: DARBEPOETIN ALFA
     Dosage: UNK
     Route: 042
     Dates: start: 20180102
  17. ROCALTROL [Suspect]
     Active Substance: CALCITRIOL
     Dosage: UNK
     Route: 042
     Dates: start: 20180222
  18. ROCALTROL [Suspect]
     Active Substance: CALCITRIOL
     Dosage: UNK
     Route: 042
     Dates: start: 20180127, end: 20180220
  19. DARBEPOETIN ALFA [Suspect]
     Active Substance: DARBEPOETIN ALFA
     Indication: PRODUCT USED FOR UNKNOWN INDICATION
     Dosage: UNK
     Route: 042
     Dates: start: 20150505, end: 20150622
  20. DARBEPOETIN ALFA [Suspect]
     Active Substance: DARBEPOETIN ALFA
     Dosage: UNK
     Route: 042
     Dates: start: 20151020, end: 20151121
  21. DARBEPOETIN ALFA [Suspect]
     Active Substance: DARBEPOETIN ALFA
     Dosage: UNK
     Route: 042
     Dates: start: 20161115, end: 20170304
  22. DARBEPOETIN ALFA [Suspect]
     Active Substance: DARBEPOETIN ALFA
     Dosage: UNK
     Route: 042
     Dates: start: 20170425, end: 20170610

REACTIONS (8)
  - Cerebrovascular accident [Recovering/Resolving]
  - Fracture [Recovering/Resolving]
  - Hypertension [Recovering/Resolving]
  - Diarrhoea [Recovering/Resolving]
  - Cataract [Recovering/Resolving]
  - Cataract [Recovering/Resolving]
  - Hospitalisation [Recovering/Resolving]
  - Arteriovenous fistula site complication [Recovering/Resolving]

NARRATIVE: CASE EVENT DATE: 20151019
